FAERS Safety Report 16187484 (Version 2)
Quarter: 2019Q2

REPORT INFORMATION
  Report Type: Spontaneous
  Country: CN (occurrence: CN)
  Receive Date: 20190412
  Receipt Date: 20190417
  Transmission Date: 20190711
  Serious: Yes (Other)
  Sender: FDA-Public Use
  Company Number: CN-ROCHE-2301456

PATIENT

DRUGS (5)
  1. CALCIUM FOLINATE [Concomitant]
     Active Substance: LEUCOVORIN CALCIUM
     Indication: ADENOCARCINOMA
     Dosage: DAY1
     Route: 041
     Dates: start: 20170218
  2. XELODA [Suspect]
     Active Substance: CAPECITABINE
     Indication: ADENOCARCINOMA
     Route: 048
     Dates: start: 2016, end: 2016
  3. XELODA [Suspect]
     Active Substance: CAPECITABINE
     Dosage: 8 CYCLES
     Route: 048
     Dates: start: 20170313, end: 20170919
  4. OXALIPLATIN. [Concomitant]
     Active Substance: OXALIPLATIN
     Indication: ADENOCARCINOMA
     Dosage: DAY1
     Route: 041
     Dates: start: 20170218
  5. 5-FLUOROURACIL [Concomitant]
     Active Substance: FLUOROURACIL
     Indication: ADENOCARCINOMA
     Route: 042
     Dates: start: 20170218

REACTIONS (2)
  - Bone marrow failure [Unknown]
  - Liver injury [Unknown]

NARRATIVE: CASE EVENT DATE: 2017
